FAERS Safety Report 12162395 (Version 1)
Quarter: 2016Q1

REPORT INFORMATION
  Report Type: Spontaneous
  Country: PL (occurrence: PL)
  Receive Date: 20160309
  Receipt Date: 20160309
  Transmission Date: 20160526
  Serious: Yes (Hospitalization)
  Sender: FDA-Public Use
  Company Number: PL-ABBVIE-16P-129-1540214-00

PATIENT
  Age: 54 Year
  Sex: Female
  Weight: 78 kg

DRUGS (3)
  1. EXVIERA [Suspect]
     Active Substance: DASABUVIR
     Indication: CHRONIC HEPATITIS C
     Route: 048
     Dates: start: 20151215
  2. VIEKIRAX [Suspect]
     Active Substance: OMBITASVIR\PARITAPREVIR\RITONAVIR
     Indication: CHRONIC HEPATITIS C
     Route: 048
     Dates: start: 20151215
  3. MODERIBA [Suspect]
     Active Substance: RIBAVIRIN
     Indication: CHRONIC HEPATITIS C
     Dosage: 2-0-3
     Route: 048
     Dates: start: 20151215

REACTIONS (7)
  - Blood creatinine increased [Recovered/Resolved with Sequelae]
  - Renal impairment [Unknown]
  - Urinary tract infection [Recovered/Resolved]
  - Hydronephrosis [Unknown]
  - Blood bilirubin increased [Recovered/Resolved]
  - Alanine aminotransferase increased [Recovered/Resolved]
  - Renal colic [Unknown]

NARRATIVE: CASE EVENT DATE: 201601
